FAERS Safety Report 13579377 (Version 1)
Quarter: 2017Q2

REPORT INFORMATION
  Report Type: Spontaneous
  Country: GR (occurrence: GR)
  Receive Date: 20170525
  Receipt Date: 20170525
  Transmission Date: 20170830
  Serious: Yes (Other)
  Sender: FDA-Public Use
  Company Number: GR-VALIDUS PHARMACEUTICALS LLC-GR-2017VAL000765

PATIENT
  Age: 54 Year
  Sex: Female

DRUGS (3)
  1. METOPROLOL TARTRATE. [Suspect]
     Active Substance: METOPROLOL TARTRATE
     Indication: HYPERTENSION
     Dosage: UNK
     Route: 065
  2. FELODIPINE. [Suspect]
     Active Substance: FELODIPINE
     Indication: HYPERTENSION
     Dosage: UNK
     Route: 065
  3. TELMISARTAN. [Suspect]
     Active Substance: TELMISARTAN
     Indication: HYPERTENSION
     Dosage: UNK
     Route: 065

REACTIONS (7)
  - Hypokalaemia [Unknown]
  - Muscular weakness [Unknown]
  - Blood pressure increased [Unknown]
  - Hyperaldosteronism [Unknown]
  - Nodule [Unknown]
  - Metabolic alkalosis [Unknown]
  - Blood albumin abnormal [Unknown]
